FAERS Safety Report 4887947-7 (Version None)
Quarter: 2006Q1

REPORT INFORMATION
  Report Type: 
  Country: None (occurrence: None)
  Receive Date: 20060119
  Receipt Date: 20060119
  Transmission Date: 20060701
  Serious: No
  Sender: FDA-Public Use
  Company Number: None

PATIENT
  Sex: Female
  Weight: 59.8748 kg

DRUGS (3)
  1. EMEND [Suspect]
     Indication: POST PROCEDURAL NAUSEA
     Dosage: 80 MG DAIILY PO
     Route: 048
     Dates: start: 20060118, end: 20060118
  2. EMEND [Suspect]
     Indication: PROPHYLAXIS
     Dosage: 80 MG DAIILY PO
     Route: 048
     Dates: start: 20060118, end: 20060118
  3. AMEN [Suspect]
     Indication: HORMONE REPLACEMENT THERAPY
     Dosage: 10 MG OR LESS DAILY PO
     Route: 048

REACTIONS (2)
  - DRUG DISPENSING ERROR [None]
  - MEDICATION ERROR [None]
